FAERS Safety Report 4480397-7 (Version None)
Quarter: 2004Q4

REPORT INFORMATION
  Report Type: 
  Country: None (occurrence: None)
  Receive Date: 20041018
  Receipt Date: 20040924
  Transmission Date: 20050328
  Serious: Yes (Other)
  Sender: FDA-Public Use
  Company Number: 2004075888

PATIENT
  Age: 69 Year
  Sex: Male

DRUGS (1)
  1. DOXAZOSIN (DOXAZOSIN) [Suspect]
     Indication: ILL-DEFINED DISORDER
     Dosage: 4 MG (4 MG,1 IN 1 D), ORAL
     Route: 048
     Dates: start: 19970101, end: 19970101

REACTIONS (5)
  - AGGRESSION [None]
  - BIPOLAR DISORDER [None]
  - CRYING [None]
  - PSYCHOTIC DISORDER [None]
  - SUICIDAL IDEATION [None]
